FAERS Safety Report 4529982-4 (Version None)
Quarter: 2004Q4

REPORT INFORMATION
  Report Type: 
  Country: None (occurrence: None)
  Receive Date: 20041217
  Receipt Date: 20041117
  Transmission Date: 20050328
  Serious: Yes (Hospitalization)
  Sender: FDA-Public Use
  Company Number: PHBS2004JP15635

PATIENT
  Age: 69 Year
  Sex: Male
  Weight: 51 kg

DRUGS (15)
  1. AMLODIPINE BESYLATE [Concomitant]
     Dosage: 5 MG/DAY
     Route: 048
     Dates: start: 20030329, end: 20040331
  2. ISOSORBIDE MONONITRATE [Concomitant]
     Route: 042
     Dates: start: 20030326, end: 20040407
  3. NITROGLYCERIN [Concomitant]
     Route: 042
     Dates: start: 20030327, end: 20030330
  4. PENTCILLIN [Concomitant]
     Route: 042
     Dates: start: 20030326, end: 20030330
  5. ASPIRIN [Concomitant]
     Dosage: 100 MG/DAY
     Dates: start: 20030326
  6. BLOPRESS [Concomitant]
     Dosage: 8 MG/DAY
     Dates: start: 20030326
  7. HEPARIN SODIUM [Concomitant]
     Dates: start: 20040326, end: 20040331
  8. NITROGLYCERIN [Suspect]
  9. NITROGLYCERIN [Concomitant]
     Dates: start: 20030326, end: 20030331
  10. NITROGLYCERIN [Concomitant]
  11. LOPRESSOR [Suspect]
     Indication: ACUTE MYOCARDIAL INFARCTION
     Dosage: 60 MG/DAY
     Route: 048
     Dates: start: 20030326, end: 20030331
  12. CANDESARTAN [Concomitant]
     Dosage: 2 TO 8 MG/DAY
     Route: 048
     Dates: start: 20030326, end: 20030327
  13. ASPIRIN [Concomitant]
     Dosage: 100 MG/DAY
  14. TICLOPIDINE HCL [Concomitant]
     Dosage: 200 MG/DAY
     Route: 048
     Dates: start: 20030326
  15. CILOSTAZOL [Concomitant]
     Dosage: 200 MG/DAY
     Dates: start: 20030326

REACTIONS (11)
  - ACUTE MYOCARDIAL INFARCTION [None]
  - ARTERIOSPASM CORONARY [None]
  - ASPARTATE AMINOTRANSFERASE INCREASED [None]
  - BLOOD CREATINE PHOSPHOKINASE INCREASED [None]
  - BLOOD LACTATE DEHYDROGENASE INCREASED [None]
  - BLOOD POTASSIUM INCREASED [None]
  - BLOOD PRESSURE INCREASED [None]
  - CARDIAC DISORDER [None]
  - CHEST PAIN [None]
  - CORONARY ARTERY OCCLUSION [None]
  - ELECTROCARDIOGRAM ST SEGMENT ELEVATION [None]
